FAERS Safety Report 20659414 (Version 1)
Quarter: 2022Q1

REPORT INFORMATION
  Report Type: Spontaneous
  Country: US (occurrence: US)
  Receive Date: 20220331
  Receipt Date: 20220331
  Transmission Date: 20220423
  Serious: No
  Sender: FDA-Public Use
  Company Number: US-PFIZER INC-2021815968

PATIENT
  Age: 80 Year
  Sex: Female

DRUGS (2)
  1. IBRANCE [Suspect]
     Active Substance: PALBOCICLIB
     Dosage: 125 MG, CYCLIC(125MG DAILY FOR 21 DAYS ON, 7 DAYS OFF ON A 28 DAY CYCLE)
     Dates: start: 20210626
  2. BENADRYL [Concomitant]
     Active Substance: DIPHENHYDRAMINE HYDROCHLORIDE
     Dosage: UNK

REACTIONS (9)
  - Fatigue [Unknown]
  - Insomnia [Not Recovered/Not Resolved]
  - Restless legs syndrome [Not Recovered/Not Resolved]
  - Oral pain [Unknown]
  - Somnolence [Unknown]
  - Hypoaesthesia [Unknown]
  - Pruritus [Not Recovered/Not Resolved]
  - Initial insomnia [Unknown]
  - Epistaxis [Unknown]

NARRATIVE: CASE EVENT DATE: 20210601
